FAERS Safety Report 25735572 (Version 1)
Quarter: 2025Q3

REPORT INFORMATION
  Report Type: Spontaneous
  Country: US (occurrence: None)
  Receive Date: 20250828
  Receipt Date: 20250828
  Transmission Date: 20251021
  Serious: No
  Sender: FDA-CTU
  Company Number: None

PATIENT
  Age: 55 Year
  Sex: Female

DRUGS (1)
  1. VTAMA [Suspect]
     Active Substance: TAPINAROF
     Indication: Psoriasis
     Dosage: OTHER STRENGTH : 1%CREAM60GM,1%;?OTHER QUANTITY : ATHINLAYERTOAFFECTEDAREA;?FREQUENCY : DAILY;?DOSAGE: APPLY A THIN LAYER TO AFFECTED AREA(S)
     Dates: start: 202407

REACTIONS (1)
  - Surgery [None]
